FAERS Safety Report 9116050 (Version 1)
Quarter: 2013Q1

REPORT INFORMATION
  Report Type: Spontaneous
  Country: US (occurrence: US)
  Receive Date: 20130225
  Receipt Date: 20130225
  Transmission Date: 20140127
  Serious: No
  Sender: FDA-Public Use
  Company Number: US-BAYER-2013-022114

PATIENT
  Sex: 0

DRUGS (7)
  1. BAYER GENUINE ASPIRIN ORIGINAL STRENGTH [Suspect]
  2. ALEVE CAPLET/TABLET,MIDOL EXTENDED RELIEF CAPLET [Suspect]
  3. VICODIN [Concomitant]
     Dosage: 2 UNITS, EVERY 4 TO 6 HOURS
  4. IBUPROFEN [Concomitant]
  5. TYLENOL NOS [Concomitant]
  6. EXCEDRIN [CAFFEINE,PARACETAMOL] [Concomitant]
  7. TRAMADOL [Concomitant]

REACTIONS (1)
  - Drug ineffective [None]
